FAERS Safety Report 6378718-3 (Version None)
Quarter: 2009Q3

REPORT INFORMATION
  Report Type: 
  Country: None (occurrence: None)
  Receive Date: 20090928
  Receipt Date: 20090917
  Transmission Date: 20100115
  Serious: Yes (Hospitalization)
  Sender: FDA-Public Use
  Company Number: BR-MEDIMMUNE-MEDI-0008925

PATIENT
  Sex: Male
  Weight: 9.5 kg

DRUGS (2)
  1. SYNAGIS [Suspect]
     Dates: start: 20090424, end: 20090625
  2. SYNAGIS [Suspect]
     Dates: start: 20090625

REACTIONS (5)
  - BRONCHIOLITIS [None]
  - DECREASED APPETITE [None]
  - DYSPNOEA [None]
  - PNEUMONIA [None]
  - PYREXIA [None]
